FAERS Safety Report 11909599 (Version 2)
Quarter: 2016Q1

REPORT INFORMATION
  Report Type: Spontaneous
  Country: CN (occurrence: CN)
  Receive Date: 20160112
  Receipt Date: 20160118
  Transmission Date: 20160526
  Serious: Yes (Death)
  Sender: FDA-Public Use
  Company Number: CN-ROCHE-1692959

PATIENT

DRUGS (5)
  1. MANNITOL. [Suspect]
     Active Substance: MANNITOL
     Indication: CEREBRAL INFARCTION
     Route: 042
  2. CITICOLINE [Suspect]
     Active Substance: CITICOLINE
     Indication: CEREBRAL INFARCTION
     Route: 042
  3. ASPIRIN. [Suspect]
     Active Substance: ASPIRIN
     Indication: CEREBRAL INFARCTION
     Route: 048
  4. DANHONG [Suspect]
     Active Substance: HERBALS
     Indication: CEREBRAL INFARCTION
     Route: 042
  5. ACTILYSE [Suspect]
     Active Substance: ALTEPLASE
     Indication: CEREBRAL INFARCTION
     Dosage: 0.6-0.9 MG/KG, MAXIMUM DOSE LESS THAN 90 MG, )
     Route: 042

REACTIONS (1)
  - Death [Fatal]
